FAERS Safety Report 8803783 (Version 2)
Quarter: 2012Q4

REPORT INFORMATION
  Report Type: 
  Country: FR (occurrence: FR)
  Receive Date: 20120924
  Receipt Date: 20121004
  Transmission Date: 20130627
  Serious: Yes (Other)
  Sender: FDA-Public Use
  Company Number: FR-PFIZER INC-2012232877

PATIENT
  Age: 34 Year
  Sex: Female

DRUGS (6)
  1. LYRICA [Suspect]
     Indication: PAIN
     Dosage: 75 mg, 2x/day
     Dates: start: 200908
  2. LYRICA [Suspect]
     Dosage: 150 mg, 2x/day
  3. RIVOTRIL [Suspect]
     Indication: PAIN
     Dosage: 15 drops 3x/day (15 Gtt per day)
     Dates: start: 200908
  4. TRAMADOL [Concomitant]
     Indication: PAIN
  5. SKENAN [Concomitant]
     Indication: PAIN
     Dosage: UNK
  6. PARACETAMOL [Concomitant]
     Indication: PAIN
     Dosage: UNK

REACTIONS (4)
  - Muscle spasms [Not Recovered/Not Resolved]
  - Hypotonia [Not Recovered/Not Resolved]
  - Ataxia [Not Recovered/Not Resolved]
  - Quadriplegia [Not Recovered/Not Resolved]
